FAERS Safety Report 7093392-9 (Version None)
Quarter: 2010Q4

REPORT INFORMATION
  Report Type: 
  Country: None (occurrence: None)
  Receive Date: 20101110
  Receipt Date: 20101101
  Transmission Date: 20110411
  Serious: Yes (Other)
  Sender: FDA-Public Use
  Company Number: US-JNJFOC-20101102093

PATIENT
  Age: 65 Year
  Sex: Female
  Weight: 122.93 kg

DRUGS (11)
  1. PEPCID COMPLETE [Suspect]
     Indication: NAUSEA
     Route: 048
  2. PEPCID COMPLETE [Suspect]
     Indication: DYSPEPSIA
     Route: 048
  3. PEPCID COMPLETE [Suspect]
     Indication: ABDOMINAL PAIN UPPER
     Route: 048
  4. HYDROCHLOROTHIAZIDE [Concomitant]
     Indication: HYPERTENSION
  5. ARMOUR THYROID [Concomitant]
     Indication: HYPOTHYROIDISM
  6. ALLEGRA [Concomitant]
     Indication: MULTIPLE ALLERGIES
  7. ENALAPRIL MALEATE [Concomitant]
     Indication: HYPERTENSION
  8. CRESTOR [Concomitant]
     Indication: BLOOD CHOLESTEROL INCREASED
  9. METOPROLOL [Concomitant]
     Indication: CARDIAC DISORDER
  10. METOPROLOL [Concomitant]
     Indication: HYPERTENSION
  11. METFORMIN HCL [Concomitant]
     Indication: DIABETES MELLITUS

REACTIONS (1)
  - VOMITING [None]
